FAERS Safety Report 7782133-5 (Version None)
Quarter: 2011Q3

REPORT INFORMATION
  Report Type: 
  Country: None (occurrence: None)
  Receive Date: 20110927
  Receipt Date: 20110914
  Transmission Date: 20111222
  Serious: Yes (Hospitalization, Other)
  Sender: FDA-Public Use
  Company Number: US-ELI_LILLY_AND_COMPANY-US201003003147

PATIENT
  Sex: Female

DRUGS (6)
  1. FORTEO [Suspect]
     Dosage: 20 UG, QD
  2. FORTEO [Suspect]
     Dosage: 20 UG, DAILY (1/D)
     Route: 065
  3. FORTEO [Suspect]
     Indication: OSTEOPOROSIS
     Dosage: 20 UG, QD
     Route: 065
  4. FORTEO [Suspect]
     Dosage: 20 UG, QD
     Route: 065
  5. CRESTOR [Concomitant]
  6. WARFARIN SODIUM [Concomitant]

REACTIONS (7)
  - CONVULSION [None]
  - MUSCLE SPASMS [None]
  - URINE ABNORMALITY [None]
  - GAIT DISTURBANCE [None]
  - FALL [None]
  - UPPER LIMB FRACTURE [None]
  - DYSSTASIA [None]
